FAERS Safety Report 8049013-1 (Version None)
Quarter: 2012Q1

REPORT INFORMATION
  Report Type: 
  Country: None (occurrence: None)
  Receive Date: 20120110
  Receipt Date: 20111229
  Transmission Date: 20120608
  Serious: Yes (Life-Threatening, Hospitalization, Other)
  Sender: FDA-Public Use
  Company Number: VAL_00690_2012

PATIENT
  Age: 50 Year
  Sex: Male

DRUGS (3)
  1. CALCIUM CARBONATE [Suspect]
     Indication: BLOOD CALCIUM DECREASED
     Dosage: (15 G INTRAVENOUS (NOT OTHERWISE SPECIFIED))
     Route: 042
  2. CALCITRIOL [Suspect]
     Indication: BLOOD CALCIUM DECREASED
     Dosage: (2 UG ORAL)
     Route: 048
  3. CALCITRIOL [Suspect]
     Indication: HYPERPARATHYROIDISM SECONDARY
     Dosage: (2 UG ORAL)
     Route: 048

REACTIONS (3)
  - GRAND MAL CONVULSION [None]
  - HYPERINSULINAEMIA [None]
  - HYPOGLYCAEMIA [None]
